FAERS Safety Report 7427686-1 (Version None)
Quarter: 2011Q1

REPORT INFORMATION
  Report Type: 
  Country: None (occurrence: None)
  Receive Date: 20110328
  Receipt Date: 20110315
  Transmission Date: 20110831
  Serious: Yes (Hospitalization)
  Sender: FDA-Public Use
  Company Number: AEUSA201100057

PATIENT
  Sex: Female

DRUGS (2)
  1. GAMUNEX [Suspect]
     Indication: MYASTHENIA GRAVIS
     Dosage: QOW;IV
     Route: 042
  2. CELLCEPT [Suspect]
     Indication: PRODUCT USED FOR UNKNOWN INDICATION
     Dates: start: 20110307

REACTIONS (2)
  - GASTROENTERITIS VIRAL [None]
  - DEHYDRATION [None]
